FAERS Safety Report 5079824-6 (Version None)
Quarter: 2006Q3

REPORT INFORMATION
  Report Type: 
  Country: None (occurrence: None)
  Receive Date: 20060720
  Receipt Date: 20050525
  Transmission Date: 20061208
  Serious: Yes (Other)
  Sender: FDA-Public Use
  Company Number: 2005080166

PATIENT
  Sex: Female

DRUGS (6)
  1. CELEBREX [Suspect]
     Indication: PAIN
     Dosage: 200 MG (200 MG, QD INTERVAL: EVERY DAY) ORAL
     Route: 048
     Dates: end: 20050523
  2. VITAMINS [Concomitant]
  3. CALCIUM GLUCONATE [Concomitant]
  4. SYNTHROID [Concomitant]
  5. PRILOSEC [Concomitant]
  6. NEXIUM [Concomitant]

REACTIONS (11)
  - ARTHRALGIA [None]
  - BLOOD PRESSURE FLUCTUATION [None]
  - BODY HEIGHT DECREASED [None]
  - CORONARY ARTERY DISEASE [None]
  - DRY SKIN [None]
  - HEADACHE [None]
  - HYPERHIDROSIS [None]
  - HYPERTENSION [None]
  - RASH [None]
  - TINNITUS [None]
  - URTICARIA [None]
